FAERS Safety Report 24135232 (Version 2)
Quarter: 2024Q3

REPORT INFORMATION
  Report Type: Spontaneous
  Country: CN (occurrence: CN)
  Receive Date: 20240725
  Receipt Date: 20240809
  Transmission Date: 20241017
  Serious: Yes (Other)
  Sender: ARGENX BVBA
  Company Number: CN-ARGENX-2024-ARGX-CN005557

PATIENT

DRUGS (2)
  1. EFGARTIGIMOD ALFA [Suspect]
     Active Substance: EFGARTIGIMOD ALFA
     Indication: Myasthenia gravis
     Dosage: 10 MG/KG, ONCE WEEKLY FOR 4 WEEKS
     Route: 042
  2. EFGARTIGIMOD ALFA [Suspect]
     Active Substance: EFGARTIGIMOD ALFA
     Indication: Myasthenia gravis

REACTIONS (7)
  - Eczema herpeticum [Recovered/Resolved]
  - Ophthalmic herpes simplex [Recovered/Resolved]
  - Seborrhoeic dermatitis [Recovering/Resolving]
  - Skin disorder [Unknown]
  - Drug effective for unapproved indication [Unknown]
  - Off label use [Unknown]
  - Malassezia infection [Recovering/Resolving]
